FAERS Safety Report 8973073 (Version 1)
Quarter: 2012Q4

REPORT INFORMATION
  Report Type: 
  Country: US (occurrence: US)
  Receive Date: 20121219
  Receipt Date: 20121219
  Transmission Date: 20130627
  Serious: No
  Sender: FDA-Public Use
  Company Number: US-009507513-1212USA006318

PATIENT
  Age: 72 Year
  Sex: Male

DRUGS (1)
  1. DULERA [Suspect]
     Dosage: between 1:00 and 2:00 pm daily
     Route: 055
     Dates: start: 201210

REACTIONS (2)
  - Somnolence [Unknown]
  - Flushing [Unknown]
